FAERS Safety Report 8461345-1 (Version None)
Quarter: 2012Q2

REPORT INFORMATION
  Report Type: 
  Country: None (occurrence: None)
  Receive Date: 20120323
  Receipt Date: 20110913
  Transmission Date: 20120825
  Serious: Yes (Other)
  Sender: FDA-Public Use
  Company Number: 163-21880-11091542

PATIENT
  Age: 68 Year
  Sex: Male

DRUGS (10)
  1. ATIVAN [Concomitant]
  2. TICLOPIDINE HCL [Concomitant]
  3. LENALIDOMIDE [Suspect]
     Indication: MULTIPLE MYELOMA
     Dosage: 25 MG, DAILY X 28 DAYS, PO ; 10 MG, DAILY X 28 DAYS, PO
     Route: 048
     Dates: start: 20110101
  4. LENALIDOMIDE [Suspect]
     Indication: MULTIPLE MYELOMA
     Dosage: 25 MG, DAILY X 28 DAYS, PO ; 10 MG, DAILY X 28 DAYS, PO
     Route: 048
     Dates: start: 20110811
  5. ASPIRIN [Concomitant]
  6. PRILOSEC [Concomitant]
  7. METOPROLOL TARTRATE [Concomitant]
  8. LISINOPRIL [Concomitant]
  9. NOVOLOG [Concomitant]
  10. SYNTHROID [Concomitant]

REACTIONS (2)
  - CARDIAC FAILURE CONGESTIVE [None]
  - OEDEMA PERIPHERAL [None]
